FAERS Safety Report 7033633-7 (Version None)
Quarter: 2010Q4

REPORT INFORMATION
  Report Type: 
  Country: None (occurrence: None)
  Receive Date: 20101005
  Receipt Date: 20100923
  Transmission Date: 20110411
  Serious: Yes (Other)
  Sender: FDA-Public Use
  Company Number: DSA_43853_2010

PATIENT
  Sex: Female

DRUGS (11)
  1. XENAZINE [Suspect]
     Indication: DYSTONIA
     Dosage: (12.5 MG TID ORAL)
     Route: 048
     Dates: start: 20100601, end: 20100701
  2. BENADRYL [Concomitant]
  3. VALIUM [Concomitant]
  4. ORAP [Concomitant]
  5. REMERON [Concomitant]
  6. CALTRATE [Concomitant]
  7. EXCEDRIN (MIGRAINE) [Concomitant]
  8. FENTANYL CITRATE [Concomitant]
  9. NORCO [Concomitant]
  10. SOMA [Concomitant]
  11. NEURONTIN [Concomitant]

REACTIONS (19)
  - AGGRESSION [None]
  - ANXIETY [None]
  - CHOKING [None]
  - CONDITION AGGRAVATED [None]
  - COORDINATION ABNORMAL [None]
  - DEPRESSION [None]
  - DIZZINESS POSTURAL [None]
  - DYSPHAGIA [None]
  - DYSTONIA [None]
  - EMOTIONAL DISORDER [None]
  - FLAT AFFECT [None]
  - GAIT DISTURBANCE [None]
  - HYPERSOMNIA [None]
  - IRRITABILITY [None]
  - MENTAL DISORDER [None]
  - MUSCULOSKELETAL STIFFNESS [None]
  - PAIN IN EXTREMITY [None]
  - STRESS [None]
  - URINARY HESITATION [None]
